FAERS Safety Report 4574453-2 (Version None)
Quarter: 2005Q1

REPORT INFORMATION
  Report Type: 
  Country: None (occurrence: None)
  Receive Date: 20050208
  Receipt Date: 20010824
  Transmission Date: 20050727
  Serious: No
  Sender: FDA-Public Use
  Company Number: US-GLAXOSMITHKLINE-A0352304A

PATIENT
  Sex: Male

DRUGS (4)
  1. PAXIL [Suspect]
     Indication: DEPRESSION
     Route: 048
  2. PROZAC [Concomitant]
  3. EFFEXOR XR [Concomitant]
     Dosage: 75MG PER DAY
  4. LIPITOR [Concomitant]
     Dosage: 20MG PER DAY
     Route: 048
     Dates: start: 20000515

REACTIONS (22)
  - ABDOMINAL DISCOMFORT [None]
  - AGITATION [None]
  - ANXIETY [None]
  - ASTHENIA [None]
  - DISTURBANCE IN ATTENTION [None]
  - DIZZINESS [None]
  - DRUG WITHDRAWAL SYNDROME [None]
  - FATIGUE [None]
  - FEELING ABNORMAL [None]
  - HEADACHE [None]
  - HYPERHIDROSIS [None]
  - INFLUENZA [None]
  - LETHARGY [None]
  - MALAISE [None]
  - MEMORY IMPAIRMENT [None]
  - NERVOUSNESS [None]
  - NIGHTMARE [None]
  - PARAESTHESIA [None]
  - SENSORY DISTURBANCE [None]
  - SLEEP DISORDER [None]
  - SOMNOLENCE [None]
  - VERTIGO [None]
